FAERS Safety Report 8601008-2 (Version None)
Quarter: 2012Q2

REPORT INFORMATION
  Report Type: 
  Country: None (occurrence: None)
  Receive Date: 20120423
  Receipt Date: 20100126
  Transmission Date: 20120825
  Serious: Yes (Hospitalization, Other)
  Sender: FDA-Public Use
  Company Number: PHEH2010US01495

PATIENT
  Age: 85 Year
  Sex: Female

DRUGS (1)
  1. FEMARA [Suspect]
     Dosage: 2.5 MG, DAILY, ORAL
     Route: 048
     Dates: start: 20091209, end: 20100126

REACTIONS (2)
  - DRUG INEFFECTIVE [None]
  - METASTASES TO BONE [None]
